FAERS Safety Report 22268529 (Version 1)
Quarter: 2023Q2

REPORT INFORMATION
  Report Type: Other
  Country: KR (occurrence: None)
  Receive Date: 20230430
  Receipt Date: 20230430
  Transmission Date: 20230722
  Serious: Yes (Other)
  Sender: FDA-Public Use
  Company Number: KR-ROCHE-3340353

PATIENT
  Age: 38 Year
  Sex: Female

DRUGS (9)
  1. BEVACIZUMAB [Suspect]
     Active Substance: BEVACIZUMAB
     Indication: Non-small cell lung cancer
     Dosage: SECOND LINE THERAPY
     Route: 065
     Dates: start: 2019
  2. ATEZOLIZUMAB [Suspect]
     Active Substance: ATEZOLIZUMAB
     Indication: Non-small cell lung cancer
     Dosage: SECOND LINE THERAPY
     Route: 065
     Dates: start: 2019
  3. PACLITAXEL [Suspect]
     Active Substance: PACLITAXEL
     Indication: Non-small cell lung cancer
     Dosage: SECOND LINE THERAPY
     Route: 065
     Dates: start: 2019
  4. CARBOPLATIN [Suspect]
     Active Substance: CARBOPLATIN
     Indication: Non-small cell lung cancer
     Dosage: SECOND LINE THERAPY
     Route: 065
     Dates: start: 2019
  5. PEMETREXED [Suspect]
     Active Substance: PEMETREXED
     Indication: Non-small cell lung cancer
     Dosage: THIRD LINE THERAPY
     Route: 065
  6. GEFITINIB [Concomitant]
     Active Substance: GEFITINIB
     Dates: start: 201811
  7. DOCETAXEL [Concomitant]
     Active Substance: DOCETAXEL
     Dosage: FORTH LINE THERAPY
  8. GEMCITABINE [Concomitant]
     Active Substance: GEMCITABINE
     Dosage: FIFTH LINE THERAPY
  9. CISPLATIN [Concomitant]
     Active Substance: CISPLATIN
     Dosage: FIFTH LINE THERAPY

REACTIONS (2)
  - Metastases to meninges [Not Recovered/Not Resolved]
  - Disease progression [Not Recovered/Not Resolved]

NARRATIVE: CASE EVENT DATE: 20190101
